FAERS Safety Report 7931037-3 (Version None)
Quarter: 2011Q4

REPORT INFORMATION
  Report Type: 
  Country: None (occurrence: None)
  Receive Date: 20111121
  Receipt Date: 20111111
  Transmission Date: 20120403
  Serious: Yes (Hospitalization, Other)
  Sender: FDA-Public Use
  Company Number: DE-JNJFOC-20111104869

PATIENT
  Sex: Male

DRUGS (10)
  1. FRAGMIN [Concomitant]
     Dates: end: 20111026
  2. PANTOPRAZOLE SODIUM [Concomitant]
  3. MARCUMAR [Concomitant]
  4. TRAMADOL HYDROCHLORIDE [Concomitant]
  5. NOVALGIN [Concomitant]
  6. CELEBREX [Concomitant]
     Dates: end: 20111102
  7. FRAXIPARIN [Concomitant]
     Dates: end: 20111024
  8. XARELTO [Suspect]
     Indication: KNEE ARTHROPLASTY
     Route: 065
     Dates: start: 20111025, end: 20111026
  9. FRAXIPARIN [Concomitant]
     Dates: start: 20111026
  10. XARELTO [Suspect]
     Indication: OSTEOARTHRITIS
     Route: 065
     Dates: start: 20111025, end: 20111026

REACTIONS (1)
  - THROMBOSIS [None]
